FAERS Safety Report 4434048-8 (Version None)
Quarter: 2004Q3

REPORT INFORMATION
  Report Type: 
  Country: None (occurrence: None)
  Receive Date: 20040825
  Receipt Date: 20040812
  Transmission Date: 20050211
  Serious: Yes (Other)
  Sender: FDA-Public Use
  Company Number: A0366118A

PATIENT
  Age: 66 Year
  Sex: Female

DRUGS (3)
  1. NICORETTE [Suspect]
     Indication: EX-SMOKER
     Dosage: 2 MG/ TRANSBUCCAL
     Route: 002
     Dates: start: 19960101
  2. NICORETTE [Suspect]
     Dosage: TRANSBUCCAL
     Route: 002
     Dates: start: 19880101, end: 19960101
  3. DOXYLAMINE SUCCINATE [Concomitant]

REACTIONS (5)
  - DRUG DEPENDENCE [None]
  - DRUG WITHDRAWAL SYNDROME [None]
  - MEDICATION ERROR [None]
  - MOOD ALTERED [None]
  - PSYCHOMOTOR HYPERACTIVITY [None]
